FAERS Safety Report 8485924-0 (Version None)
Quarter: 2012Q3

REPORT INFORMATION
  Report Type: 
  Country: None (occurrence: None)
  Receive Date: 20120703
  Receipt Date: 20120625
  Transmission Date: 20120928
  Serious: Yes (Hospitalization, Other)
  Sender: FDA-Public Use
  Company Number: BR-ABBOTT-12P-020-0949959-00

PATIENT
  Sex: Female
  Weight: 72 kg

DRUGS (2)
  1. DEPAKENE [Suspect]
     Indication: EPILEPSY
     Dosage: 2 CAPSULES AM AND 2 AT NIGHT
     Route: 048
  2. DEPAKENE [Suspect]
     Dosage: 1 CAPSULE AM AND 2 AT NIGHT
     Route: 048

REACTIONS (16)
  - OVARIAN CYST [None]
  - PAIN [None]
  - DENGUE FEVER [None]
  - LYMPHOCYTOSIS [None]
  - NECK MASS [None]
  - OEDEMA PERIPHERAL [None]
  - UNEVALUABLE EVENT [None]
  - GENERALISED ERYTHEMA [None]
  - PYREXIA [None]
  - POST PROCEDURAL HAEMORRHAGE [None]
  - LEUKOPENIA [None]
  - THYROID NEOPLASM [None]
  - MONOCYTOSIS [None]
  - EYE PAIN [None]
  - PNEUMONIA [None]
  - RASH MACULAR [None]
